FAERS Safety Report 20135094 (Version 1)
Quarter: 2021Q4

REPORT INFORMATION
  Report Type: Spontaneous
  Country: AM (occurrence: AM)
  Receive Date: 20211201
  Receipt Date: 20211201
  Transmission Date: 20220303
  Serious: Yes (Other)
  Sender: FDA-Public Use
  Company Number: AM-LUPIN PHARMACEUTICALS INC.-2021-23456

PATIENT
  Age: 22 Year
  Sex: Female

DRUGS (6)
  1. RIVAROXABAN [Suspect]
     Active Substance: RIVAROXABAN
     Indication: Deep vein thrombosis
     Dosage: UNK
     Route: 065
  2. RIVAROXABAN [Suspect]
     Active Substance: RIVAROXABAN
     Indication: Anticoagulant therapy
  3. HYDROXYCHLOROQUINE [Suspect]
     Active Substance: HYDROXYCHLOROQUINE
     Indication: Thrombosis prophylaxis
     Dosage: UNK
     Route: 065
  4. HYDROXYCHLOROQUINE [Suspect]
     Active Substance: HYDROXYCHLOROQUINE
     Indication: Antiphospholipid syndrome
  5. WARFARIN [Suspect]
     Active Substance: WARFARIN
     Indication: Thrombosis prophylaxis
     Dosage: UNK
     Route: 065
  6. WARFARIN [Suspect]
     Active Substance: WARFARIN
     Indication: Anticoagulant therapy

REACTIONS (3)
  - Drug ineffective [Unknown]
  - Exposure during pregnancy [Unknown]
  - Off label use [Unknown]
